FAERS Safety Report 6852338-6 (Version None)
Quarter: 2010Q3

REPORT INFORMATION
  Report Type: 
  Country: None (occurrence: None)
  Receive Date: 20100717
  Receipt Date: 20071113
  Transmission Date: 20110219
  Serious: No
  Sender: FDA-Public Use
  Company Number: US-PFIZER INC-2007097148

PATIENT
  Sex: Female
  Weight: 50.8 kg

DRUGS (13)
  1. CHANTIX [Suspect]
     Indication: SMOKING CESSATION THERAPY
     Dates: start: 20071001
  2. REGLAN [Concomitant]
  3. HYOSCYAMINE SULFATE [Concomitant]
  4. CYMBALTA [Concomitant]
  5. ENTOCORT EC [Concomitant]
  6. NEURONTIN [Concomitant]
  7. LOMOTIL [Concomitant]
  8. PERCOCET [Concomitant]
  9. VALIUM [Concomitant]
  10. MONTELUKAST SODIUM [Concomitant]
  11. SOMA [Concomitant]
  12. ALBUTEROL [Concomitant]
  13. ADVAIR DISKUS 100/50 [Concomitant]

REACTIONS (3)
  - ABNORMAL DREAMS [None]
  - ANXIETY [None]
  - NAUSEA [None]
